FAERS Safety Report 23669409 (Version 2)
Quarter: 2024Q2

REPORT INFORMATION
  Report Type: Spontaneous
  Country: US (occurrence: US)
  Receive Date: 20240325
  Receipt Date: 20240413
  Transmission Date: 20240715
  Serious: Yes (Death, Life-Threatening, Hospitalization)
  Sender: FDA-Public Use
  Company Number: US-TEVA-VS-3173470

PATIENT
  Age: 63 Year
  Sex: Male

DRUGS (4)
  1. DEXAMETHASONE [Suspect]
     Active Substance: DEXAMETHASONE
     Indication: Nervous system disorder
     Dosage: HIGH-DOSE
     Route: 065
  2. IVERMECTIN [Suspect]
     Active Substance: IVERMECTIN
     Indication: Disseminated strongyloidiasis
     Dosage: HIGH DOSE
     Route: 054
  3. IVERMECTIN [Suspect]
     Active Substance: IVERMECTIN
     Indication: Disseminated strongyloidiasis
     Dosage: HIGH DOSE
     Route: 065
  4. ALBENDAZOLE [Suspect]
     Active Substance: ALBENDAZOLE
     Indication: Disseminated strongyloidiasis
     Route: 048

REACTIONS (8)
  - Disseminated strongyloidiasis [Fatal]
  - Small intestinal obstruction [Unknown]
  - Intestinal ischaemia [Unknown]
  - Drug ineffective [Fatal]
  - Septic shock [Unknown]
  - Malabsorption [Unknown]
  - Pneumonia [Unknown]
  - Acute respiratory failure [Unknown]
